FAERS Safety Report 14364739 (Version 1)
Quarter: 2018Q1

REPORT INFORMATION
  Report Type: Spontaneous
  Country: US (occurrence: US)
  Receive Date: 20180107
  Receipt Date: 20180107
  Transmission Date: 20180509
  Serious: No
  Sender: FDA-Public Use
  Company Number: None

PATIENT
  Age: 57 Year
  Sex: Female
  Weight: 70.65 kg

DRUGS (7)
  1. BUPROPION. [Suspect]
     Active Substance: BUPROPION
     Indication: SMOKING CESSATION THERAPY
     Dosage: ?          QUANTITY:100 TABLET(S);?
     Route: 048
  2. MEDICAL MARIJUANA [Concomitant]
     Active Substance: CANNABIS SATIVA SUBSP. INDICA TOP
  3. BUPROPION. [Suspect]
     Active Substance: BUPROPION
     Indication: DEPRESSION
     Dosage: ?          QUANTITY:100 TABLET(S);?
     Route: 048
  4. METHOCARBANOL [Concomitant]
  5. DULOXETINE. [Concomitant]
     Active Substance: DULOXETINE
  6. DIAZEPAM. [Concomitant]
     Active Substance: DIAZEPAM
  7. ANATRYPTALINE [Concomitant]

REACTIONS (4)
  - Drug effect decreased [None]
  - Product substitution issue [None]
  - Abdominal pain upper [None]
  - Nausea [None]

NARRATIVE: CASE EVENT DATE: 20170101
